FAERS Safety Report 4968480-0 (Version None)
Quarter: 2006Q2

REPORT INFORMATION
  Report Type: 
  Country: None (occurrence: None)
  Receive Date: 20060410
  Receipt Date: 20050615
  Transmission Date: 20061013
  Serious: Yes (Hospitalization)
  Sender: FDA-Public Use
  Company Number: GB-MERCK-0506GBR00115

PATIENT
  Age: 71 Year
  Sex: Female

DRUGS (7)
  1. VIOXX [Suspect]
     Route: 048
     Dates: start: 20030710, end: 20041004
  2. CELECOXIB [Suspect]
     Indication: RHEUMATOID ARTHRITIS
     Route: 048
     Dates: start: 20041004, end: 20050110
  3. CLOPIDOGREL BISULFATE [Concomitant]
     Indication: CEREBROVASCULAR ACCIDENT
     Route: 065
     Dates: start: 20040715
  4. LEVOTHYROXINE SODIUM [Concomitant]
     Indication: HYPOTHYROIDISM
     Route: 065
  5. METHOTREXATE [Concomitant]
     Indication: RHEUMATOID ARTHRITIS
     Route: 065
     Dates: start: 20040712
  6. FOLIC ACID [Concomitant]
     Indication: RHEUMATOID ARTHRITIS
     Route: 065
     Dates: start: 20040712
  7. PREDNISOLONE [Concomitant]
     Route: 065

REACTIONS (2)
  - HEMIANOPIA HOMONYMOUS [None]
  - PULMONARY EMBOLISM [None]
